FAERS Safety Report 8772508 (Version 3)
Quarter: 2012Q4

REPORT INFORMATION
  Report Type: 
  Country: US (occurrence: US)
  Receive Date: 20120905
  Receipt Date: 20121129
  Transmission Date: 20130627
  Serious: Yes (Death, Hospitalization)
  Sender: FDA-Public Use
  Company Number: US-CELGENEUS-163-21880-12083248

PATIENT
  Age: 65 Year
  Sex: Male

DRUGS (11)
  1. REVLIMID [Suspect]
     Indication: MULTIPLE MYELOMA
     Dosage: 25 Milligram
     Route: 048
     Dates: start: 201001, end: 2010
  2. REVLIMID [Suspect]
     Dosage: 10-5mg
     Route: 048
     Dates: start: 201011
  3. REVLIMID [Suspect]
     Dosage: 25-10mg
     Route: 048
     Dates: start: 20111121, end: 2012
  4. REVLIMID [Suspect]
     Dosage: 5 Milligram
     Route: 048
     Dates: start: 201204, end: 201207
  5. REVLIMID [Suspect]
     Dosage: 10 Milligram
     Route: 048
     Dates: start: 201207, end: 201208
  6. HIZENTRA [Concomitant]
     Indication: DRUG USE FOR UNKNOWN INDICATION
     Route: 041
  7. FENTANYL [Concomitant]
     Indication: PAIN
     Dosage: 25 Microgram
     Route: 065
  8. IMDUR [Concomitant]
     Indication: DRUG USE FOR UNKNOWN INDICATION
     Route: 065
  9. METOPROLOL [Concomitant]
     Indication: DRUG USE FOR UNKNOWN INDICATION
     Dosage: 150 Milligram
     Route: 065
  10. SEROQUEL [Concomitant]
     Indication: DRUG USE FOR UNKNOWN INDICATION
     Dosage: 25mgAM and 100mg QPM
     Route: 065
  11. ACYCLOVIR [Concomitant]
     Indication: ANTIVIRAL PROPHYLAXIS
     Dosage: 800 Milligram
     Route: 065

REACTIONS (2)
  - Plasma cell myeloma [Fatal]
  - Septic shock [Fatal]
